FAERS Safety Report 18066713 (Version 3)
Quarter: 2020Q4

REPORT INFORMATION
  Report Type: Spontaneous
  Country: US (occurrence: US)
  Receive Date: 20200724
  Receipt Date: 20201020
  Transmission Date: 20210113
  Serious: No
  Sender: FDA-Public Use
  Company Number: US-PFIZER INC-2020282079

PATIENT
  Age: 67 Year
  Sex: Female

DRUGS (1)
  1. DICLOFENAC EPOLAMINE [Suspect]
     Active Substance: DICLOFENAC EPOLAMINE
     Dosage: UNK

REACTIONS (1)
  - Abdominal discomfort [Unknown]
